FAERS Safety Report 8259716-1 (Version None)
Quarter: 2012Q2

REPORT INFORMATION
  Report Type: 
  Country: None (occurrence: None)
  Receive Date: 20120404
  Receipt Date: 20120327
  Transmission Date: 20120825
  Serious: Yes (Hospitalization, Other)
  Sender: FDA-Public Use
  Company Number: GB-JNJFOC-20110608634

PATIENT
  Sex: Female

DRUGS (1)
  1. HALDOL [Suspect]
     Indication: SCHIZOPHRENIA, PARANOID TYPE
     Route: 065
     Dates: start: 20000101

REACTIONS (22)
  - GROIN PAIN [None]
  - DELUSION [None]
  - RASH ERYTHEMATOUS [None]
  - RESTLESS LEGS SYNDROME [None]
  - SUICIDAL IDEATION [None]
  - HOSPITALISATION [None]
  - HALLUCINATION, VISUAL [None]
  - IRRITABLE BOWEL SYNDROME [None]
  - WEIGHT INCREASED [None]
  - HALLUCINATION, AUDITORY [None]
  - SEDATION [None]
  - CONSTIPATION [None]
  - DRUG INEFFECTIVE [None]
  - COGNITIVE DISORDER [None]
  - HEADACHE [None]
  - DEPRESSION [None]
  - BACK PAIN [None]
  - MYALGIA [None]
  - INSOMNIA [None]
  - DISTURBANCE IN ATTENTION [None]
  - HYPERSENSITIVITY [None]
  - RASH [None]
